FAERS Safety Report 8878166 (Version 1)
Quarter: 2012Q4

REPORT INFORMATION
  Report Type: Spontaneous
  Country: JP (occurrence: None)
  Receive Date: 20121026
  Receipt Date: 20121026
  Transmission Date: 20130627
  Serious: Yes (Death)
  Sender: FDA-Public Use
  Company Number: DSA_60300_2012

PATIENT

DRUGS (3)
  1. FLUOROURACIL [Suspect]
     Indication: OESOPHAGEAL CARCINOMA
     Route: 042
  2. CISPLATIN [Suspect]
     Indication: OESOPHAGEAL CARCINOMA
     Route: 042
  3. UNSPECIFIED INGREDIENT [Suspect]
     Indication: OESOPHAGEAL CARCINOMA
     Dosage: (60 Gy/30 fractions/7 weeks  (1 week split at the 4th week)

REACTIONS (1)
  - Acute myeloid leukaemia [None]
